FAERS Safety Report 7424294-3 (Version None)
Quarter: 2011Q2

REPORT INFORMATION
  Report Type: 
  Country: None (occurrence: None)
  Receive Date: 20110419
  Receipt Date: 20110415
  Transmission Date: 20111010
  Serious: Yes (Death)
  Sender: FDA-Public Use
  Company Number: JP-PFIZER INC-2011048571

PATIENT
  Age: 67 Year
  Sex: Male
  Weight: 53.2 kg

DRUGS (3)
  1. FERRUM ^GREEN CROSS^ [Concomitant]
     Indication: ANAEMIA
     Dosage: 1 CAPSULE, DAILY
     Route: 048
     Dates: start: 20110217, end: 20110220
  2. SUTENT [Suspect]
     Indication: METASTATIC RENAL CELL CARCINOMA
     Dosage: 50 MG, 1X/DAY
     Route: 048
     Dates: start: 20110204, end: 20110220
  3. PURSENNID [Concomitant]
     Indication: CONSTIPATION
     Dosage: 2 TABLETS, DAILY
     Route: 048
     Dates: start: 20110204, end: 20110220

REACTIONS (3)
  - MULTI-ORGAN FAILURE [None]
  - DISSEMINATED INTRAVASCULAR COAGULATION [None]
  - DUODENAL PERFORATION [None]
